FAERS Safety Report 6651176-7 (Version None)
Quarter: 2010Q1

REPORT INFORMATION
  Report Type: 
  Country: None (occurrence: None)
  Receive Date: 20100323
  Receipt Date: 20100316
  Transmission Date: 20100710
  Serious: Yes (Hospitalization, Disabling, Other)
  Sender: FDA-Public Use
  Company Number: 2009SP017681

PATIENT
  Age: 41 Year
  Sex: Female
  Weight: 47.6277 kg

DRUGS (9)
  1. NUVARING [Suspect]
     Indication: MENSTRUAL CYCLE MANAGEMENT
     Dosage: 1 DF;QM;VAG
     Route: 067
     Dates: start: 20031001
  2. NUVARING [Suspect]
     Indication: MENSTRUAL CYCLE MANAGEMENT
     Dosage: 1 DF;QM;VAG
     Route: 067
     Dates: start: 20040901
  3. NUVARING [Suspect]
     Indication: MENSTRUAL CYCLE MANAGEMENT
     Dosage: 1 DF;QM;VAG
     Route: 067
     Dates: start: 20050101
  4. TOPAMAX [Concomitant]
  5. NASACORT [Concomitant]
  6. AMITRIPTYLINE HCL [Concomitant]
  7. MAXALT [Concomitant]
  8. PARAFON FORTE [Concomitant]
  9. TYLENOL-500 [Concomitant]

REACTIONS (19)
  - BLEPHAROSPASM [None]
  - BLOOD POTASSIUM DECREASED [None]
  - BRAIN STEM HAEMORRHAGE [None]
  - CEREBRAL ARTERY OCCLUSION [None]
  - CEREBRAL INFARCTION [None]
  - CEREBRAL ISCHAEMIA [None]
  - CEREBROVASCULAR ACCIDENT [None]
  - CONVULSION [None]
  - DEPRESSION [None]
  - DRUG SCREEN POSITIVE [None]
  - DYSPHAGIA [None]
  - GAZE PALSY [None]
  - HEMIANOPIA HOMONYMOUS [None]
  - INTRACRANIAL PRESSURE INCREASED [None]
  - SINUSITIS [None]
  - UNRESPONSIVE TO STIMULI [None]
  - UPPER LIMB FRACTURE [None]
  - UPPER MOTOR NEURONE LESION [None]
  - VAGINAL DISCHARGE [None]
